FAERS Safety Report 17571051 (Version 1)
Quarter: 2020Q1

REPORT INFORMATION
  Report Type: Spontaneous
  Country: US (occurrence: US)
  Receive Date: 20200323
  Receipt Date: 20200323
  Transmission Date: 20200409
  Serious: No
  Sender: FDA-Public Use
  Company Number: US-AUROBINDO-AUR-APL-2019-033123

PATIENT
  Sex: Female
  Weight: 48 kg

DRUGS (1)
  1. GABAPENTIN CAPSULES 300 MG [Suspect]
     Active Substance: GABAPENTIN
     Indication: HERPES ZOSTER
     Dosage: 3 CAPSULES PER DAY, TOOK 2 CAPSULES
     Route: 065
     Dates: start: 20190408, end: 20190410

REACTIONS (4)
  - Nightmare [Recovered/Resolved]
  - Disorientation [Recovered/Resolved]
  - Drug ineffective [Unknown]
  - Abnormal dreams [Recovered/Resolved]

NARRATIVE: CASE EVENT DATE: 20190408
